FAERS Safety Report 16439910 (Version 2)
Quarter: 2019Q3

REPORT INFORMATION
  Report Type: Spontaneous
  Country: BE (occurrence: BE)
  Receive Date: 20190617
  Receipt Date: 20190731
  Transmission Date: 20191004
  Serious: Yes (Death, Hospitalization, Other)
  Sender: FDA-Public Use
  Company Number: BE-009507513-1906BEL004653

PATIENT
  Age: 87 Year
  Sex: Female
  Weight: 49 kg

DRUGS (1)
  1. KEYTRUDA [Suspect]
     Active Substance: PEMBROLIZUMAB
     Indication: NON-SMALL CELL LUNG CANCER METASTATIC
     Dosage: 200 MILLIGRAM, EVERY THREE WEEKS
     Dates: start: 20180914, end: 20190517

REACTIONS (2)
  - Immune-mediated adverse reaction [Fatal]
  - Toxic skin eruption [Fatal]

NARRATIVE: CASE EVENT DATE: 20190601
